FAERS Safety Report 14920141 (Version 2)
Quarter: 2018Q3

REPORT INFORMATION
  Report Type: Spontaneous
  Country: FR (occurrence: FR)
  Receive Date: 20180521
  Receipt Date: 20180820
  Transmission Date: 20181010
  Serious: Yes (Hospitalization)
  Sender: FDA-Public Use
  Company Number: FR-PFIZER INC-2018203689

PATIENT
  Age: 65 Year
  Sex: Male

DRUGS (1)
  1. VORICONAZOLE. [Suspect]
     Active Substance: VORICONAZOLE
     Indication: INFECTION
     Dosage: 500 MG, UNK
     Dates: start: 20180102, end: 20180326

REACTIONS (2)
  - Neuropathy peripheral [Recovering/Resolving]
  - Solar dermatitis [Recovered/Resolved]

NARRATIVE: CASE EVENT DATE: 201803
